FAERS Safety Report 22059516 (Version 1)
Quarter: 2023Q1

REPORT INFORMATION
  Report Type: Spontaneous
  Country: US (occurrence: None)
  Receive Date: 20230302
  Receipt Date: 20230302
  Transmission Date: 20230417
  Serious: No
  Sender: FDA-Public Use
  Company Number: None

PATIENT
  Sex: Female

DRUGS (1)
  1. VERZENIO [Suspect]
     Active Substance: ABEMACICLIB
     Indication: Metastases to bone
     Dosage: FREQUENCY : TWICE A DAY;?
     Route: 048
     Dates: start: 202212

REACTIONS (1)
  - Therapy non-responder [None]
